FAERS Safety Report 5088751-X (Version None)
Quarter: 2006Q3

REPORT INFORMATION
  Report Type: 
  Country: None (occurrence: None)
  Receive Date: 20060825
  Receipt Date: 20060821
  Transmission Date: 20061208
  Serious: Yes (Life-Threatening, Hospitalization, Other)
  Sender: FDA-Public Use
  Company Number: GB-GLAXOSMITHKLINE-B0435385A

PATIENT
  Sex: Female

DRUGS (8)
  1. AVANDIA [Suspect]
     Indication: DIABETES MELLITUS
     Route: 048
     Dates: start: 20001101, end: 20010206
  2. ASPIRIN [Concomitant]
     Route: 065
  3. ACETAMINOPHEN W/ CODEINE [Concomitant]
     Indication: PAIN
     Route: 048
  4. DIAMICRON [Concomitant]
     Indication: DIABETES MELLITUS NON-INSULIN-DEPENDENT
     Route: 048
  5. DIGOXIN [Concomitant]
     Route: 048
  6. DOTHIEPIN HYDROCHLORIDE [Concomitant]
     Indication: DEPRESSION
     Route: 048
  7. NIFEDIPINE [Concomitant]
     Indication: CHEST PAIN
     Route: 048
  8. TEARS NATURALE [Concomitant]
     Route: 047

REACTIONS (5)
  - CONTUSION [None]
  - MOUTH HAEMORRHAGE [None]
  - PETECHIAE [None]
  - SKIN LESION [None]
  - THROMBOCYTOPENIA [None]
